FAERS Safety Report 8758377 (Version 1)
Quarter: 2012Q4

REPORT INFORMATION
  Report Type: Spontaneous
  Country: US (occurrence: None)
  Receive Date: 20120828
  Receipt Date: 20120828
  Transmission Date: 20130627
  Serious: Yes (Hospitalization)
  Sender: FDA-Public Use
  Company Number: None

PATIENT
  Age: 70 Year
  Sex: Female
  Weight: 98 kg

DRUGS (1)
  1. VANCOMYCIN [Suspect]
     Indication: STAPHYLOCOCCUS AUREUS BACTEREMIA
     Route: 042
     Dates: start: 20120813, end: 20120815

REACTIONS (4)
  - Blood creatinine increased [None]
  - Pneumonia [None]
  - Thrombophlebitis superficial [None]
  - Hypotension [None]
